FAERS Safety Report 10146068 (Version 1)
Quarter: 2014Q2

REPORT INFORMATION
  Report Type: Spontaneous
  Country: US (occurrence: US)
  Receive Date: 20140501
  Receipt Date: 20140501
  Transmission Date: 20141212
  Serious: Yes (Other)
  Sender: FDA-Public Use
  Company Number: US-ASTELLAS-2014US004251

PATIENT
  Age: 64 Year
  Sex: Male

DRUGS (2)
  1. VESICARE [Suspect]
     Indication: PRODUCT USED FOR UNKNOWN INDICATION
     Route: 065
     Dates: start: 20140407, end: 20140412
  2. ALBUTEROL                          /00139501/ [Concomitant]
     Indication: ASTHMA
     Dosage: UNK, UNKNOWN FREQ.
     Route: 055

REACTIONS (2)
  - Asthma [Recovering/Resolving]
  - Constipation [Recovering/Resolving]
